FAERS Safety Report 5132495-2 (Version None)
Quarter: 2006Q4

REPORT INFORMATION
  Report Type: 
  Country: None (occurrence: None)
  Receive Date: 20061019
  Receipt Date: 20061019
  Transmission Date: 20070319
  Serious: Yes (Hospitalization, Other)
  Sender: FDA-Public Use
  Company Number: None

PATIENT
  Sex: Female

DRUGS (1)
  1. ISOVUE-300 [Suspect]
     Dates: start: 20061017, end: 20061017

REACTIONS (7)
  - FACE OEDEMA [None]
  - FLUSHING [None]
  - HYPOTENSION [None]
  - PRURITUS [None]
  - RASH [None]
  - TACHYCARDIA [None]
  - URTICARIA [None]
